FAERS Safety Report 17146896 (Version 1)
Quarter: 2019Q4

REPORT INFORMATION
  Report Type: Spontaneous
  Country: US (occurrence: US)
  Receive Date: 20191212
  Receipt Date: 20191212
  Transmission Date: 20200122
  Serious: Yes (Hospitalization, Other)
  Sender: FDA-Public Use
  Company Number: US-009507513-1912USA004643

PATIENT
  Age: 61 Year
  Sex: Male
  Weight: 66.67 kg

DRUGS (1)
  1. KEYTRUDA [Suspect]
     Active Substance: PEMBROLIZUMAB
     Indication: NEOPLASM MALIGNANT
     Dosage: 75 MILLIGRAM/SQ. METER, Q3W
     Route: 042
     Dates: start: 20180907, end: 20191119

REACTIONS (4)
  - Incorrect dose administered [Unknown]
  - Vomiting [Unknown]
  - Malignant neoplasm progression [Unknown]
  - Headache [Unknown]

NARRATIVE: CASE EVENT DATE: 201912
